FAERS Safety Report 7518613-7 (Version None)
Quarter: 2011Q2

REPORT INFORMATION
  Report Type: 
  Country: None (occurrence: None)
  Receive Date: 20110601
  Receipt Date: 20110601
  Transmission Date: 20111010
  Serious: Yes (Life-Threatening, Hospitalization, Other)
  Sender: FDA-Public Use
  Company Number: None

PATIENT
  Age: 42 Year
  Sex: Male
  Weight: 180.5316 kg

DRUGS (3)
  1. PRILOSEC [Suspect]
     Indication: PROPHYLAXIS
     Dosage: ADVISED DOSE 2X DAILY PO
     Route: 048
     Dates: start: 20000615, end: 20080505
  2. PRILOSEC [Suspect]
     Indication: GASTRIC BYPASS
     Dosage: ADVISED DOSE 2X DAILY PO
     Route: 048
     Dates: start: 20000615, end: 20080505
  3. PRILOSEC [Suspect]
     Indication: DISEASE COMPLICATION
     Dosage: ADVISED DOSE 2X DAILY PO
     Route: 048
     Dates: start: 20000615, end: 20080505

REACTIONS (6)
  - MALABSORPTION [None]
  - SPINAL FRACTURE [None]
  - IMPAIRED WORK ABILITY [None]
  - INCORRECT DOSE ADMINISTERED [None]
  - INCORRECT DRUG ADMINISTRATION DURATION [None]
  - DRUG INTERACTION [None]
